FAERS Safety Report 18120199 (Version 1)
Quarter: 2020Q3

REPORT INFORMATION
  Report Type: Spontaneous
  Country: US (occurrence: US)
  Receive Date: 20200806
  Receipt Date: 20200806
  Transmission Date: 20201103
  Serious: No
  Sender: FDA-Public Use
  Company Number: US-TEVA-2020-US-1811756

PATIENT
  Age: 62 Year
  Sex: Male

DRUGS (1)
  1. INDOMETHACIN TEVA [Suspect]
     Active Substance: INDOMETHACIN
     Indication: HEADACHE
     Route: 048

REACTIONS (1)
  - Drug ineffective [Unknown]
